FAERS Safety Report 25214766 (Version 1)
Quarter: 2025Q2

REPORT INFORMATION
  Report Type: Spontaneous
  Country: US (occurrence: US)
  Receive Date: 20250418
  Receipt Date: 20250418
  Transmission Date: 20250716
  Serious: Yes (Death, Life-Threatening, Hospitalization, Other)
  Sender: ASTELLAS
  Company Number: US-ASTELLAS-2025-AER-021509

PATIENT
  Age: 77 Year
  Sex: Male

DRUGS (2)
  1. ERLOTINIB [Suspect]
     Active Substance: ERLOTINIB
     Indication: Metastatic renal cell carcinoma
     Route: 065
  2. BEVACIZUMAB [Suspect]
     Active Substance: BEVACIZUMAB
     Indication: Metastatic renal cell carcinoma
     Route: 065

REACTIONS (5)
  - Haematochezia [Fatal]
  - Haematemesis [Fatal]
  - Haemoglobin decreased [Fatal]
  - Hypotension [Fatal]
  - Off label use [Unknown]
